FAERS Safety Report 19011196 (Version 1)
Quarter: 2021Q1

REPORT INFORMATION
  Report Type: Spontaneous
  Country: US (occurrence: US)
  Receive Date: 20210313
  Receipt Date: 20210313
  Transmission Date: 20210420
  Serious: No
  Sender: FDA-Public Use
  Company Number: None

PATIENT
  Age: 72 Year
  Weight: 44.1 kg

DRUGS (2)
  1. BACLOFEN CREAM [Concomitant]
  2. AMITRIPTYLINE 2% OINTMENT [Suspect]
     Active Substance: AMITRIPTYLINE
     Indication: CYSTITIS INTERSTITIAL
     Dosage: ?          QUANTITY:1 GRAM;?
     Route: 061

REACTIONS (3)
  - Rash [None]
  - Dermatitis contact [None]
  - Pruritus [None]

NARRATIVE: CASE EVENT DATE: 20210227
